FAERS Safety Report 14034296 (Version 1)
Quarter: 2017Q4

REPORT INFORMATION
  Report Type: Spontaneous
  Country: JP (occurrence: JP)
  Receive Date: 20171003
  Receipt Date: 20171003
  Transmission Date: 20180321
  Serious: Yes (Other)
  Sender: FDA-Public Use
  Company Number: JP-PFIZER INC-2017420280

PATIENT
  Age: 84 Year
  Sex: Male

DRUGS (5)
  1. ETIZOLAM EMEC [Concomitant]
     Active Substance: ETIZOLAM
     Dosage: 0.75 MG, DAILY
  2. LYRICA [Suspect]
     Active Substance: PREGABALIN
     Dosage: 100 MG, DAILY
     Route: 048
  3. TRAMAL [Suspect]
     Active Substance: TRAMADOL
     Dosage: 100 MG, DAILY
     Route: 048
     Dates: start: 20170921
  4. TIZANIDINE. [Concomitant]
     Active Substance: TIZANIDINE
     Dosage: 1 G, DAILY
  5. TRAMAL [Suspect]
     Active Substance: TRAMADOL
     Dosage: 50 MG, DAILY
     Route: 048

REACTIONS (3)
  - Aspiration [Unknown]
  - Pulmonary function test decreased [Unknown]
  - Coma [Recovered/Resolved]

NARRATIVE: CASE EVENT DATE: 20170923
